FAERS Safety Report 7367517-1 (Version None)
Quarter: 2011Q1

REPORT INFORMATION
  Report Type: 
  Country: None (occurrence: None)
  Receive Date: 20110322
  Receipt Date: 20100914
  Transmission Date: 20110831
  Serious: Yes (Hospitalization, Other)
  Sender: FDA-Public Use
  Company Number: US-BAYER-201025777NA

PATIENT
  Sex: Female
  Weight: 104 kg

DRUGS (7)
  1. YAZ [Suspect]
     Indication: CONTRACEPTION
     Dosage: UNK UNK, UNK
     Route: 048
     Dates: start: 20070717, end: 20080101
  2. YAZ [Suspect]
     Indication: ACNE
  3. YAZ [Suspect]
     Indication: PREMENSTRUAL SYNDROME
  4. YAZ [Suspect]
  5. YASMIN [Suspect]
     Indication: PRODUCT USED FOR UNKNOWN INDICATION
     Route: 048
  6. MECLIZINE [Concomitant]
     Dosage: 12.5 MG, UNK
  7. UNCODEABLE ^UNCLASSIFIABLE^ [Concomitant]
     Indication: CONTRACEPTION
     Dosage: UNK
     Dates: start: 20080601, end: 20091201

REACTIONS (6)
  - CHOLECYSTITIS [None]
  - BILIARY DYSKINESIA [None]
  - VOMITING [None]
  - GALLBLADDER DISORDER [None]
  - NAUSEA [None]
  - ABDOMINAL PAIN UPPER [None]
